FAERS Safety Report 25257176 (Version 1)
Quarter: 2025Q2

REPORT INFORMATION
  Report Type: Report from Study
  Country: IT (occurrence: IT)
  Receive Date: 20250430
  Receipt Date: 20250430
  Transmission Date: 20250716
  Serious: Yes (Hospitalization, Other)
  Sender: MYLAN
  Company Number: IT-BRISTOL-MYERS SQUIBB COMPANY-2025-050879

PATIENT
  Age: 33 Year
  Sex: Female

DRUGS (19)
  1. VANCOMYCIN [Suspect]
     Active Substance: VANCOMYCIN
     Indication: Enterococcal sepsis
     Dosage: 1 GRAM, BID
     Dates: start: 20220629, end: 20220630
  2. VANCOMYCIN [Suspect]
     Active Substance: VANCOMYCIN
     Indication: Vascular device infection
  3. BORTEZOMIB [Suspect]
     Active Substance: BORTEZOMIB
     Indication: Plasma cell myeloma
     Dates: start: 20220613, end: 20220616
  4. BORTEZOMIB [Suspect]
     Active Substance: BORTEZOMIB
  5. LINEZOLID [Suspect]
     Active Substance: LINEZOLID
     Indication: Enterococcal sepsis
     Dosage: 600 MILLIGRAM, BID
     Dates: start: 20220629, end: 20220708
  6. LINEZOLID [Suspect]
     Active Substance: LINEZOLID
     Indication: Vascular device infection
  7. THALIDOMIDE [Suspect]
     Active Substance: THALIDOMIDE
     Indication: Plasma cell myeloma
     Dates: start: 20220613, end: 20220616
  8. THALIDOMIDE [Suspect]
     Active Substance: THALIDOMIDE
  9. DARATUMUMAB [Suspect]
     Active Substance: DARATUMUMAB
     Indication: Plasma cell myeloma
     Dates: start: 20220613, end: 20220616
  10. DARATUMUMAB [Suspect]
     Active Substance: DARATUMUMAB
  11. DEXAMETHASONE [Suspect]
     Active Substance: DEXAMETHASONE
     Indication: Plasma cell myeloma
     Dates: start: 20220613, end: 20220616
  12. DEXAMETHASONE [Suspect]
     Active Substance: DEXAMETHASONE
  13. OMEPRAZOLE [Concomitant]
     Active Substance: OMEPRAZOLE
     Indication: Gastrointestinal disorder prophylaxis
  14. ASPIRIN [Concomitant]
     Active Substance: ASPIRIN
     Indication: Thrombosis prophylaxis
  15. ACYCLOVIR [Concomitant]
     Active Substance: ACYCLOVIR
     Indication: Antiviral prophylaxis
  16. BACTRIM [Concomitant]
     Active Substance: SULFAMETHOXAZOLE\TRIMETHOPRIM
     Indication: Antibiotic prophylaxis
  17. ALLOPURINOL [Concomitant]
     Active Substance: ALLOPURINOL
     Indication: Prophylaxis
  18. LASIX [Concomitant]
     Active Substance: FUROSEMIDE
     Indication: Renal failure
  19. NIFEDIPINE [Concomitant]
     Active Substance: NIFEDIPINE
     Indication: Hypertension

REACTIONS (5)
  - Nephrolithiasis [Recovered/Resolved]
  - Enterococcal sepsis [Recovered/Resolved]
  - Vascular device infection [Recovered/Resolved]
  - Hypersensitivity [Unknown]
  - Pruritus [Unknown]

NARRATIVE: CASE EVENT DATE: 20220617
